FAERS Safety Report 7802148-8 (Version None)
Quarter: 2011Q4

REPORT INFORMATION
  Report Type: 
  Country: None (occurrence: None)
  Receive Date: 20111007
  Receipt Date: 20110928
  Transmission Date: 20120403
  Serious: Yes (Hospitalization)
  Sender: FDA-Public Use
  Company Number: US-JNJFOC-20111000396

PATIENT
  Sex: Female
  Weight: 70.76 kg

DRUGS (5)
  1. REMICADE [Suspect]
     Route: 042
     Dates: start: 20020412
  2. ANTIDEPRESSANTS [Concomitant]
     Indication: CROHN'S DISEASE
  3. REMICADE [Suspect]
     Route: 042
     Dates: start: 20100602
  4. REMICADE [Suspect]
     Indication: CROHN'S DISEASE
     Route: 042
  5. AZATHIOPRINE [Concomitant]
     Indication: CROHN'S DISEASE

REACTIONS (4)
  - ROAD TRAFFIC ACCIDENT [None]
  - LUMBAR VERTEBRAL FRACTURE [None]
  - CONVULSION [None]
  - CEREBROVASCULAR ACCIDENT [None]
